FAERS Safety Report 7727072-0 (Version None)
Quarter: 2011Q3

REPORT INFORMATION
  Report Type: 
  Country: None (occurrence: None)
  Receive Date: 20110902
  Receipt Date: 20110818
  Transmission Date: 20111222
  Serious: Yes (Hospitalization)
  Sender: FDA-Public Use
  Company Number: US-BAYER-2011-056874

PATIENT
  Age: 39 Year
  Sex: Female
  Weight: 112 kg

DRUGS (4)
  1. ASPIRIN [Suspect]
     Indication: RHEUMATOID ARTHRITIS
     Dosage: UNK UNK, BID
     Route: 048
     Dates: start: 20091026, end: 20110609
  2. ASPIRIN [Suspect]
     Indication: CARDIOVASCULAR EVENT PROPHYLAXIS
     Dosage: 325 MG, QD
     Dates: start: 20101203
  3. METHOTREXATE [Suspect]
     Indication: RHEUMATOID ARTHRITIS
     Dosage: 15 MG, OW
     Route: 048
     Dates: start: 20090514
  4. VOLTAREN [Suspect]
     Indication: RHEUMATOID ARTHRITIS
     Dosage: 75 MG, BID
     Dates: start: 20110201

REACTIONS (8)
  - DEHYDRATION [None]
  - URINARY TRACT INFECTION [None]
  - VOMITING [None]
  - ABDOMINAL PAIN [None]
  - IMPAIRED GASTRIC EMPTYING [None]
  - DIABETIC GASTROPARESIS [None]
  - NAUSEA [None]
  - GASTRITIS [None]
